FAERS Safety Report 21734575 (Version 1)
Quarter: 2022Q4

REPORT INFORMATION
  Report Type: Spontaneous
  Country: US (occurrence: None)
  Receive Date: 20221215
  Receipt Date: 20221215
  Transmission Date: 20230113
  Serious: No
  Sender: FDA-Public Use
  Company Number: None

PATIENT
  Age: 54 Year
  Sex: Male

DRUGS (1)
  1. CEFAZOLIN SODIUM [Suspect]
     Active Substance: CEFAZOLIN SODIUM
     Indication: Infection prophylaxis
     Dosage: 2 GM IV
     Dates: start: 20221205, end: 20221205

REACTIONS (7)
  - Nausea [None]
  - Vomiting [None]
  - Tachycardia [None]
  - Non-cardiac chest pain [None]
  - Hypoaesthesia [None]
  - Paraesthesia [None]
  - Atrial fibrillation [None]

NARRATIVE: CASE EVENT DATE: 20221205
